FAERS Safety Report 7971598-1 (Version None)
Quarter: 2011Q4

REPORT INFORMATION
  Report Type: 
  Country: None (occurrence: None)
  Receive Date: 20111212
  Receipt Date: 20111129
  Transmission Date: 20120403
  Serious: Yes (Life-Threatening, Hospitalization)
  Sender: FDA-Public Use
  Company Number: FR-CELGENEUS-056-21880-11114174

PATIENT
  Sex: Male

DRUGS (5)
  1. DEPO-MEDROL [Concomitant]
     Route: 065
  2. CYTARABINE [Concomitant]
     Route: 065
  3. METHOTREXATE [Suspect]
     Route: 041
     Dates: start: 20110509, end: 20110801
  4. REVLIMID [Suspect]
     Dosage: 25 MILLIGRAM
     Route: 048
     Dates: start: 20110706, end: 20110801
  5. ZENTEL [Concomitant]
     Dosage: 800 MILLIGRAM
     Route: 065

REACTIONS (3)
  - INTERSTITIAL LUNG DISEASE [None]
  - NEUROPATHY PERIPHERAL [None]
  - DIPLOPIA [None]
